FAERS Safety Report 5971484-2 (Version None)
Quarter: 2008Q4

REPORT INFORMATION
  Report Type: 
  Country: None (occurrence: None)
  Receive Date: 20081201
  Receipt Date: 20081120
  Transmission Date: 20090506
  Serious: Yes (Other)
  Sender: FDA-Public Use
  Company Number: JP-BRISTOL-MYERS SQUIBB COMPANY-14421028

PATIENT
  Age: 65 Year
  Sex: Male

DRUGS (8)
  1. MEVALOTIN [Suspect]
     Indication: HYPERLIPIDAEMIA
     Route: 048
     Dates: start: 20080502, end: 20081011
  2. ACTOS [Suspect]
     Route: 065
  3. MICARDIS [Concomitant]
     Route: 065
  4. NORVASC [Concomitant]
     Route: 065
  5. METFORMIN HCL [Concomitant]
     Route: 065
  6. AMARYL [Concomitant]
     Route: 065
  7. BASEN [Concomitant]
     Dosage: BASEN OD
     Route: 065
  8. EPADEL [Concomitant]
     Route: 065

REACTIONS (2)
  - HEPATITIS FULMINANT [None]
  - RENAL FAILURE ACUTE [None]
